FAERS Safety Report 16322689 (Version 2)
Quarter: 2024Q3

REPORT INFORMATION
  Report Type: Spontaneous
  Country: FR (occurrence: FR)
  Receive Date: 20190516
  Receipt Date: 20240726
  Transmission Date: 20241017
  Serious: Yes (Life-Threatening, Other)
  Sender: MERCK
  Company Number: None

PATIENT
  Age: 66 Year
  Sex: Male
  Weight: 115 kg

DRUGS (4)
  1. EMEND [Interacting]
     Active Substance: APREPITANT
     Indication: Prophylaxis of nausea and vomiting
     Dosage: 1 DOSAGE FORM, QD
     Route: 048
     Dates: start: 20190419, end: 20190421
  2. IFOSFAMIDE [Interacting]
     Active Substance: IFOSFAMIDE
     Indication: Central nervous system lymphoma
     Dosage: 7520 MILLIGRAM, ONCE (TOTAL)
     Route: 042
     Dates: start: 20190420
  3. ETOPOSIDE [Concomitant]
     Active Substance: ETOPOSIDE
     Indication: Central nervous system lymphoma
     Dosage: 100 MILLIGRAM, QD
     Route: 042
     Dates: start: 20190419, end: 20190421
  4. CARBOPLATIN [Concomitant]
     Active Substance: CARBOPLATIN
     Indication: Central nervous system lymphoma
     Dosage: 260 MILLIGRAM, ONCE (TOTAL)
     Route: 042
     Dates: start: 20190420

REACTIONS (2)
  - Drug interaction [Recovered/Resolved]
  - Encephalopathy [Recovering/Resolving]

NARRATIVE: CASE EVENT DATE: 20190401
